FAERS Safety Report 8151009-6 (Version None)
Quarter: 2012Q1

REPORT INFORMATION
  Report Type: 
  Country: None (occurrence: None)
  Receive Date: 20120220
  Receipt Date: 20120216
  Transmission Date: 20120608
  Serious: Yes (Death, Hospitalization)
  Sender: FDA-Public Use
  Company Number: US-BRISTOL-MYERS SQUIBB COMPANY-15115264

PATIENT
  Age: 51 Year
  Sex: Female

DRUGS (21)
  1. CARBOPLATIN [Suspect]
     Indication: NON-SMALL CELL LUNG CANCER
     Dosage: 1DF=6AUC; ON DAY 1 OF EACH 21 DAY CYCLE
     Route: 042
     Dates: start: 20100118, end: 20100118
  2. FAMOTIDINE [Concomitant]
     Indication: GASTROOESOPHAGEAL REFLUX DISEASE
     Dates: start: 20091111, end: 20100125
  3. LANSOPRAZOLE [Concomitant]
     Indication: GASTROOESOPHAGEAL REFLUX DISEASE
     Dates: start: 20090713, end: 20100125
  4. PROPACET 100 [Concomitant]
     Indication: CANCER PAIN
     Dates: start: 20100108, end: 20100125
  5. FUROSEMIDE [Concomitant]
     Indication: FACE OEDEMA
     Dates: start: 20090203, end: 20100125
  6. LISINOPRIL [Concomitant]
     Indication: HYPERTENSION
     Dates: start: 20100111, end: 20100125
  7. AUGMENTIN '125' [Concomitant]
     Indication: EAR INFECTION
     Dates: start: 20100111, end: 20100125
  8. FERROUS SULFATE TAB [Concomitant]
     Indication: ANAEMIA
     Dates: start: 20080902, end: 20100125
  9. PACLITAXEL [Suspect]
     Indication: NON-SMALL CELL LUNG CANCER
     Route: 042
     Dates: start: 20100118, end: 20100118
  10. CYCLOBENZAPRINE [Concomitant]
     Indication: BACK PAIN
     Dates: start: 20090203, end: 20100125
  11. DULOXETINE HYDROCHLORIDE [Concomitant]
     Indication: DEPRESSION
     Dates: start: 20091210, end: 20100125
  12. DIAZEPAM [Concomitant]
     Indication: ANXIETY
     Dates: start: 20091130, end: 20100125
  13. FLUVASTATIN [Concomitant]
     Indication: BLOOD CHOLESTEROL INCREASED
     Dates: start: 20080918, end: 20100125
  14. LEVOTHYROXINE SODIUM [Concomitant]
     Indication: HYPOTHYROIDISM
     Dates: start: 20100108, end: 20100125
  15. MYLANTA [Concomitant]
     Indication: CONSTIPATION
     Dates: start: 20091028, end: 20100125
  16. ALBUTEROL SULFATE AUTOHALER [Concomitant]
     Indication: CHRONIC OBSTRUCTIVE PULMONARY DISEASE
     Dosage: 180 MCG:08JAN10 TO 25JAN10(17 DAYS)
     Dates: start: 20091103, end: 20100125
  17. VICODIN [Concomitant]
     Indication: CANCER PAIN
     Dates: start: 20091031, end: 20100125
  18. PREGABALIN [Concomitant]
     Indication: CONVULSION PROPHYLAXIS
     Dates: start: 20080126, end: 20100125
  19. RISEDRONATE SODIUM [Concomitant]
     Indication: OSTEOPOROSIS
     Dates: start: 20081107, end: 20100125
  20. FLUTICASONE PROPIONATE/SALMETEROL [Concomitant]
     Indication: CHRONIC OBSTRUCTIVE PULMONARY DISEASE
     Dates: start: 20091028, end: 20100125
  21. QUETIAPINE FUMARATE [Concomitant]
     Indication: DEPRESSION
     Dates: start: 20080902, end: 20100125

REACTIONS (3)
  - MULTI-ORGAN FAILURE [None]
  - NEUTROPENIA [None]
  - SEPTIC SHOCK [None]
